FAERS Safety Report 7743324-2 (Version None)
Quarter: 2011Q3

REPORT INFORMATION
  Report Type: 
  Country: None (occurrence: None)
  Receive Date: 20110902
  Receipt Date: 20110829
  Transmission Date: 20111222
  Serious: Yes (Other)
  Sender: FDA-Public Use
  Company Number: 2011SP040854

PATIENT
  Age: 60 Year
  Sex: Male

DRUGS (11)
  1. FENOFIBRATE [Concomitant]
  2. LEVOXYL [Concomitant]
  3. LAMOTRIGINE [Concomitant]
  4. LORCET-HD [Concomitant]
  5. ENALAPRIL MALEATE [Concomitant]
  6. BUSPAR [Concomitant]
  7. VICTRELIS [Suspect]
     Indication: HEPATITIS C
     Dosage: 800 MG;TID;PO
     Route: 048
     Dates: start: 20110826
  8. PEGASYS [Suspect]
     Indication: PRODUCT USED FOR UNKNOWN INDICATION
  9. RETINOL [Concomitant]
  10. LUNESTA [Concomitant]
  11. LEXAPRO [Concomitant]

REACTIONS (3)
  - LOSS OF CONSCIOUSNESS [None]
  - DIZZINESS [None]
  - PALPITATIONS [None]
